FAERS Safety Report 11820982 (Version 1)
Quarter: 2015Q4

REPORT INFORMATION
  Report Type: Spontaneous
  Country: US (occurrence: US)
  Receive Date: 20151210
  Receipt Date: 20151210
  Transmission Date: 20160305
  Serious: No
  Sender: FDA-Public Use
  Company Number: US-JNJFOC-20150723209

PATIENT
  Sex: Female

DRUGS (9)
  1. LOSARTAN AND HYDROCHLOROTHIAZIDE [Concomitant]
     Active Substance: HYDROCHLOROTHIAZIDE\LOSARTAN POTASSIUM
  2. METOPROLOL SUCCINATE. [Concomitant]
     Active Substance: METOPROLOL SUCCINATE
  3. IMBRUVICA [Suspect]
     Active Substance: IBRUTINIB
     Indication: CHRONIC LYMPHOCYTIC LEUKAEMIA
     Route: 048
  4. HYDROCODONE [Concomitant]
     Active Substance: HYDROCODONE
  5. IMBRUVICA [Suspect]
     Active Substance: IBRUTINIB
     Indication: CHRONIC LYMPHOCYTIC LEUKAEMIA
     Route: 048
     Dates: start: 20140701
  6. IMBRUVICA [Suspect]
     Active Substance: IBRUTINIB
     Indication: NEOPLASM MALIGNANT
     Route: 048
  7. FOLIC ACID. [Concomitant]
     Active Substance: FOLIC ACID
  8. FAMCICLOVIR. [Concomitant]
     Active Substance: FAMCICLOVIR
  9. IMBRUVICA [Suspect]
     Active Substance: IBRUTINIB
     Indication: NEOPLASM MALIGNANT
     Route: 048
     Dates: start: 20140701

REACTIONS (2)
  - Off label use [Unknown]
  - Musculoskeletal stiffness [Unknown]
